FAERS Safety Report 5734863-4 (Version None)
Quarter: 2008Q2

REPORT INFORMATION
  Report Type: 
  Country: None (occurrence: None)
  Receive Date: 20080512
  Receipt Date: 20080506
  Transmission Date: 20081010
  Serious: Yes (Death)
  Sender: FDA-Public Use
  Company Number: A0723440A

PATIENT
  Age: 68 Year
  Sex: Male

DRUGS (3)
  1. ARIXTRA [Suspect]
     Indication: COLON CANCER
     Dosage: 7.5MG PER DAY
     Route: 058
     Dates: start: 20070101, end: 20071121
  2. UNKNOWN [Concomitant]
  3. CHEMOTHERAPY [Concomitant]

REACTIONS (3)
  - CONVULSION [None]
  - DEATH [None]
  - PNEUMONIA [None]
